FAERS Safety Report 9142735 (Version 1)
Quarter: 2013Q1

REPORT INFORMATION
  Report Type: Spontaneous
  Country: US (occurrence: US)
  Receive Date: 20130306
  Receipt Date: 20130306
  Transmission Date: 20140127
  Serious: No
  Sender: FDA-Public Use
  Company Number: US-ENDO PHARMACEUTICALS INC.-OPER20120525

PATIENT
  Sex: Female

DRUGS (4)
  1. OPANA ER [Suspect]
     Indication: INTERVERTEBRAL DISC DEGENERATION
     Dosage: UNK
     Route: 048
  2. OPANA ER [Suspect]
     Indication: JOINT INJURY
  3. OPANA [Suspect]
     Indication: INTERVERTEBRAL DISC DEGENERATION
     Route: 048
     Dates: end: 201204
  4. OPANA [Suspect]
     Indication: JOINT INJURY

REACTIONS (4)
  - Electrocardiogram abnormal [Not Recovered/Not Resolved]
  - Influenza like illness [Not Recovered/Not Resolved]
  - Hypertension [Not Recovered/Not Resolved]
  - Irritability [Not Recovered/Not Resolved]
